FAERS Safety Report 25417450 (Version 1)
Quarter: 2025Q2

REPORT INFORMATION
  Report Type: Report from Study
  Country: IE (occurrence: IE)
  Receive Date: 20250610
  Receipt Date: 20250610
  Transmission Date: 20250717
  Serious: Yes (Hospitalization)
  Sender: ALEXION PHARMACEUTICALS
  Company Number: IE-ASTRAZENECA-202506EEA003317IE

PATIENT

DRUGS (6)
  1. BENRALIZUMAB [Suspect]
     Active Substance: BENRALIZUMAB
     Indication: Asthma
  2. VENTOLIN [Concomitant]
     Active Substance: ALBUTEROL SULFATE
     Route: 050
  3. OMEPRAZOLE [Concomitant]
     Active Substance: OMEPRAZOLE
     Route: 050
  4. PREDNISOLONE [Concomitant]
     Active Substance: PREDNISOLONE
     Route: 050
  5. AZITHROMYCIN [Concomitant]
     Active Substance: AZITHROMYCIN
     Route: 050
  6. FLUTIFORM [Concomitant]
     Active Substance: FLUTIFORM
     Route: 050

REACTIONS (7)
  - Malaise [Unknown]
  - Chills [Unknown]
  - Feeling cold [Unknown]
  - Headache [Unknown]
  - Body temperature increased [Unknown]
  - Memory impairment [Unknown]
  - Fatigue [Unknown]
